FAERS Safety Report 5630475-1 (Version None)
Quarter: 2008Q1

REPORT INFORMATION
  Report Type: 
  Country: None (occurrence: None)
  Receive Date: 20080219
  Receipt Date: 20080206
  Transmission Date: 20080703
  Serious: Yes (Hospitalization)
  Sender: FDA-Public Use
  Company Number: SK-AMGEN-US256541

PATIENT
  Age: 13 Year
  Sex: Female
  Weight: 41 kg

DRUGS (3)
  1. ENBREL [Suspect]
     Indication: JUVENILE ARTHRITIS
     Dosage: UNKNOWN DOSE; LYOPHILIZED
     Route: 065
     Dates: start: 20060823, end: 20070929
  2. ENBREL [Suspect]
     Dosage: 25 MG; UNSPECIFIED FREQUENCY
     Route: 058
     Dates: start: 20070929, end: 20071027
  3. METHYLPREDNISOLONE [Concomitant]
     Indication: JUVENILE ARTHRITIS
     Dosage: 2 MG EVERY OTHER DAY
     Route: 065

REACTIONS (9)
  - ASTIGMATISM [None]
  - CATARACT [None]
  - ERYSIPELAS [None]
  - HAEMATURIA [None]
  - HENOCH-SCHONLEIN PURPURA [None]
  - HYPERMETROPIA [None]
  - IRON DEFICIENCY ANAEMIA [None]
  - LYMPHADENOPATHY [None]
  - TONSILLITIS [None]
